FAERS Safety Report 10580542 (Version 1)
Quarter: 2014Q4

REPORT INFORMATION
  Report Type: Spontaneous
  Country: US (occurrence: US)
  Receive Date: 20141113
  Receipt Date: 20141113
  Transmission Date: 20150529
  Serious: Yes (Other)
  Sender: FDA-Public Use
  Company Number: US-JNJFOC-20141104351

PATIENT
  Sex: Male
  Weight: 70.31 kg

DRUGS (2)
  1. MENS ROGAINE UNSCENTED FORMULA [Suspect]
     Active Substance: MINOXIDIL
     Route: 061
  2. MENS ROGAINE UNSCENTED FORMULA [Suspect]
     Active Substance: MINOXIDIL
     Indication: ALOPECIA
     Dosage: USED PRESCRIBED AMOUNT
     Route: 061
     Dates: start: 201402

REACTIONS (2)
  - Scab [Not Recovered/Not Resolved]
  - Rash erythematous [Not Recovered/Not Resolved]
